FAERS Safety Report 5816775-0 (Version None)
Quarter: 2008Q3

REPORT INFORMATION
  Report Type: 
  Country: None (occurrence: None)
  Receive Date: 20080721
  Receipt Date: 20080703
  Transmission Date: 20090109
  Serious: No
  Sender: FDA-Public Use
  Company Number: US-BOEHRINGER INGELHEIM GMBH, GERMANY-2008-BP-10563BP

PATIENT
  Sex: Female

DRUGS (5)
  1. SPIRIVA [Suspect]
     Indication: ASTHMA
     Route: 055
     Dates: start: 20040101
  2. SINGULAIR [Concomitant]
     Indication: ASTHMA
     Route: 048
     Dates: start: 19980101
  3. HYZAAR [Concomitant]
     Indication: HYPERTENSION
     Dosage: 100/250
     Route: 048
     Dates: start: 19930101
  4. DETROL LA [Concomitant]
     Indication: STRESS URINARY INCONTINENCE
     Route: 048
  5. PREMARIN [Concomitant]
     Indication: MENOPAUSE
     Route: 048
     Dates: start: 19830101

REACTIONS (1)
  - DYSPNOEA [None]
